FAERS Safety Report 9289917 (Version 1)
Quarter: 2013Q2

REPORT INFORMATION
  Report Type: Spontaneous
  Country: US (occurrence: US)
  Receive Date: 20130515
  Receipt Date: 20130515
  Transmission Date: 20140414
  Serious: Yes (Other)
  Sender: FDA-Public Use
  Company Number: US-AMGEN-USASP2013032474

PATIENT
  Age: 53 Year
  Sex: Female

DRUGS (3)
  1. PROLIA [Suspect]
     Indication: OSTEOPOROSIS POSTMENOPAUSAL
  2. MULTIVITAMINS [Concomitant]
  3. VICODIN [Concomitant]

REACTIONS (2)
  - Thoracic vertebral fracture [Unknown]
  - Dental caries [Unknown]
